FAERS Safety Report 15517772 (Version 2)
Quarter: 2019Q3

REPORT INFORMATION
  Report Type: Spontaneous
  Country: US (occurrence: US)
  Receive Date: 20181017
  Receipt Date: 20190712
  Transmission Date: 20191004
  Serious: Yes (Other)
  Sender: FDA-Public Use
  Company Number: US-ELI_LILLY_AND_COMPANY-US201810005618

PATIENT
  Sex: Male

DRUGS (10)
  1. VIAGRA [Suspect]
     Active Substance: SILDENAFIL CITRATE
     Dosage: UNK UNK, UNKNOWN
     Route: 048
     Dates: start: 200809
  2. CIALIS [Suspect]
     Active Substance: TADALAFIL
     Indication: ERECTILE DYSFUNCTION
     Dosage: UNK, UNKNOWN
     Route: 065
     Dates: start: 20060118
  3. CIALIS [Suspect]
     Active Substance: TADALAFIL
     Dosage: UNK
     Route: 065
     Dates: start: 20130327
  4. VIAGRA [Suspect]
     Active Substance: SILDENAFIL CITRATE
     Indication: ERECTILE DYSFUNCTION
     Dosage: 1 DOSAGE FORM, ONE HOUR BEFORE SEXUAL ACTIVITY
     Route: 048
     Dates: start: 2001, end: 2004
  5. CIALIS [Suspect]
     Active Substance: TADALAFIL
     Dosage: UNK, UNKNOWN
     Route: 065
     Dates: start: 20100510
  6. VIAGRA [Suspect]
     Active Substance: SILDENAFIL CITRATE
     Dosage: 1 DOSAGE FORM, ONE HOUR BEFORE SEXUAL ACTIVITY
     Route: 048
     Dates: start: 2009, end: 2010
  7. VIAGRA [Suspect]
     Active Substance: SILDENAFIL CITRATE
     Dosage: 1 DOSAGE FORM, ONE HOUR BEFORE SEXUAL ACTIVITY
     Route: 048
     Dates: start: 20040803, end: 20070918
  8. CIALIS [Suspect]
     Active Substance: TADALAFIL
     Dosage: 10 MG, ONE TABLET EVERY DAY AS NEEDED
     Route: 065
     Dates: start: 20120425, end: 201205
  9. CIALIS [Suspect]
     Active Substance: TADALAFIL
     Dosage: UNK
     Route: 065
     Dates: start: 20131017
  10. VIAGRA [Suspect]
     Active Substance: SILDENAFIL CITRATE
     Dosage: 1 DOSAGE FORM, ONE HOUR BEFORE SEXUAL ACTIVITY
     Route: 048
     Dates: start: 20091125, end: 20091125

REACTIONS (5)
  - Malignant melanoma stage IV [Unknown]
  - Metastatic malignant melanoma [Unknown]
  - Melanoma recurrent [Unknown]
  - Malignant melanoma [Unknown]
  - Atrial fibrillation [Recovered/Resolved]

NARRATIVE: CASE EVENT DATE: 20081208
